FAERS Safety Report 16094072 (Version 1)
Quarter: 2019Q1

REPORT INFORMATION
  Report Type: Spontaneous
  Country: CZ (occurrence: CZ)
  Receive Date: 20190320
  Receipt Date: 20190320
  Transmission Date: 20190418
  Serious: Yes (Death, Hospitalization, Other)
  Sender: FDA-Public Use
  Company Number: CZ-ACCORD-072763

PATIENT
  Age: 24 Year
  Sex: Female

DRUGS (6)
  1. PEMETREXED. [Suspect]
     Active Substance: PEMETREXED
     Indication: NON-SMALL CELL LUNG CANCER STAGE IV
     Dates: start: 20140620
  2. DENOSUMAB [Suspect]
     Active Substance: DENOSUMAB
     Indication: NON-SMALL CELL LUNG CANCER STAGE IV
     Dates: start: 201406
  3. NINTEDANIB [Suspect]
     Active Substance: NINTEDANIB
     Indication: NON-SMALL CELL LUNG CANCER STAGE IV
     Dosage: ON DAYS 2 TO 22 DAY
     Dates: start: 20140821, end: 20141107
  4. DOCETAXEL. [Suspect]
     Active Substance: DOCETAXEL
     Indication: NON-SMALL CELL LUNG CANCER STAGE IV
     Dosage: EVERY THREE WEEKS
     Dates: start: 20140821
  5. FOLIC ACID. [Suspect]
     Active Substance: FOLIC ACID
     Indication: NON-SMALL CELL LUNG CANCER STAGE IV
     Dates: start: 2014
  6. CISPLATIN. [Suspect]
     Active Substance: CISPLATIN
     Indication: NON-SMALL CELL LUNG CANCER STAGE IV
     Dates: start: 20140620

REACTIONS (9)
  - Hepatotoxicity [Unknown]
  - Vomiting [Unknown]
  - Hypocalcaemia [Not Recovered/Not Resolved]
  - Nausea [Unknown]
  - Oral candidiasis [Unknown]
  - Intestinal haemorrhage [Unknown]
  - Diarrhoea [Recovered/Resolved]
  - Anaemia [Unknown]
  - Candida infection [Recovered/Resolved]

NARRATIVE: CASE EVENT DATE: 2014
